FAERS Safety Report 6655082-3 (Version None)
Quarter: 2010Q1

REPORT INFORMATION
  Report Type: 
  Country: None (occurrence: None)
  Receive Date: 20100329
  Receipt Date: 20100326
  Transmission Date: 20100710
  Serious: Yes (Life-Threatening, Hospitalization)
  Sender: FDA-Public Use
  Company Number: FR-B.I. PHARMACEUTICALS,INC./RIDGEFIELD-2010-FF-00277FF

PATIENT
  Sex: Male

DRUGS (16)
  1. ATROVENT [Suspect]
     Route: 055
  2. CISPLATINE MYLAN [Suspect]
     Indication: LUNG ADENOCARCINOMA
     Dosage: 70 MG/M2
     Route: 042
     Dates: start: 20090715, end: 20090715
  3. CISPLATINE MYLAN [Suspect]
     Dosage: 70 MG/M2
     Route: 042
     Dates: start: 20090805, end: 20090805
  4. CISPLATINE MYLAN [Suspect]
     Dosage: 70 MG/M2
     Route: 042
     Dates: start: 20090826, end: 20090826
  5. CISPLATINE MYLAN [Suspect]
     Dosage: 70 MG/M2
     Route: 042
     Dates: start: 20091019, end: 20091019
  6. ALIMTA [Suspect]
     Indication: LUNG ADENOCARCINOMA
     Dosage: 500 MG/M2
     Route: 042
     Dates: start: 20090715, end: 20090715
  7. ALIMTA [Suspect]
     Dosage: 500 MG/M2
     Route: 042
     Dates: start: 20090805, end: 20090805
  8. ALIMTA [Suspect]
     Dosage: 500 MG/M2
     Route: 042
     Dates: start: 20090826, end: 20090826
  9. ALIMTA [Suspect]
     Dosage: 500 MG/M2
     Route: 042
     Dates: start: 20091019, end: 20091019
  10. FORLAX [Suspect]
     Route: 048
  11. TOPALGIC LP [Suspect]
     Dosage: 200 MG
     Route: 048
  12. LEXOMIL ROCHE [Suspect]
     Dosage: 9 MG
     Route: 048
  13. ATARAX [Suspect]
     Dosage: 25 MG
     Route: 048
  14. VENTOLIN [Suspect]
     Route: 055
  15. PULMICORT [Suspect]
     Route: 055
  16. RADIOTHERAPY [Concomitant]
     Indication: LUNG ADENOCARCINOMA
     Dates: start: 20091126, end: 20100119

REACTIONS (2)
  - ACUTE RESPIRATORY DISTRESS SYNDROME [None]
  - INTERSTITIAL LUNG DISEASE [None]
